FAERS Safety Report 19121002 (Version 1)
Quarter: 2021Q2

REPORT INFORMATION
  Report Type: Spontaneous
  Country: US (occurrence: US)
  Receive Date: 20210412
  Receipt Date: 20210412
  Transmission Date: 20210717
  Serious: No
  Sender: FDA-Public Use
  Company Number: None

PATIENT
  Age: 63 Year
  Sex: Female
  Weight: 49.5 kg

DRUGS (7)
  1. DIAZEPAM. [Concomitant]
     Active Substance: DIAZEPAM
  2. MULTIVITAMIN [Concomitant]
     Active Substance: VITAMINS
  3. LIDOCAINE. [Concomitant]
     Active Substance: LIDOCAINE
  4. ASPARCREAM [Concomitant]
  5. GABAPENTIN. [Suspect]
     Active Substance: GABAPENTIN
     Indication: SLEEP DISORDER
     Dosage: ?          QUANTITY:2 CAPSULE(S);?
     Route: 048
  6. MAGNESIUM [Concomitant]
     Active Substance: MAGNESIUM
  7. VITAMIN C [Concomitant]
     Active Substance: ASCORBIC ACID

REACTIONS (4)
  - Memory impairment [None]
  - Product size issue [None]
  - Fall [None]
  - Feeling abnormal [None]

NARRATIVE: CASE EVENT DATE: 20210228
